FAERS Safety Report 11116227 (Version 2)
Quarter: 2015Q3

REPORT INFORMATION
  Report Type: Spontaneous
  Country: US (occurrence: US)
  Receive Date: 20150515
  Receipt Date: 20150824
  Transmission Date: 20151125
  Serious: Yes (Hospitalization, Other)
  Sender: FDA-Public Use
  Company Number: US-BAYER-2015-233185

PATIENT
  Age: 31 Year
  Sex: Female
  Weight: 47.62 kg

DRUGS (1)
  1. MIRENA [Suspect]
     Active Substance: LEVONORGESTREL
     Indication: CONTRACEPTION
     Dosage: 20 MCG/24HR, CONT
     Route: 015
     Dates: start: 20120627, end: 20140224

REACTIONS (13)
  - Genital haemorrhage [None]
  - Procedural pain [None]
  - Abdominal pain lower [None]
  - Pelvic pain [None]
  - Embedded device [None]
  - Anxiety [None]
  - Post procedural discomfort [None]
  - Migraine [None]
  - Abdominal discomfort [None]
  - Injury [None]
  - Emotional distress [None]
  - Abdominal pain [None]
  - Device issue [None]

NARRATIVE: CASE EVENT DATE: 2012
